FAERS Safety Report 13164837 (Version 2)
Quarter: 2017Q1

REPORT INFORMATION
  Report Type: Other
  Country: US (occurrence: US)
  Receive Date: 20170130
  Receipt Date: 20170306
  Transmission Date: 20170428
  Serious: Yes (Hospitalization)
  Sender: FDA-Public Use
  Company Number: US-ACORDA-ACO_132711_2017

PATIENT
  Age: 54 Year
  Sex: Male

DRUGS (7)
  1. COPAXONE [Concomitant]
     Active Substance: GLATIRAMER ACETATE
     Indication: MULTIPLE SCLEROSIS
     Dosage: 40 MG, EVERY MON, WED, FRI
     Route: 058
  2. NERVE REPAIR OPTIMIZER [Concomitant]
     Active Substance: DIETARY SUPPLEMENT
     Indication: PRODUCT USED FOR UNKNOWN INDICATION
     Dosage: 300 MG, BID
     Route: 048
  3. BACLOFEN. [Concomitant]
     Active Substance: BACLOFEN
     Indication: PRODUCT USED FOR UNKNOWN INDICATION
     Dosage: 20 MG, Q 6 HRS
     Route: 048
  4. DITROPAN [Concomitant]
     Active Substance: OXYBUTYNIN CHLORIDE
     Indication: PRODUCT USED FOR UNKNOWN INDICATION
     Dosage: 5 MG, ONCE
     Route: 048
  5. AMPYRA [Suspect]
     Active Substance: DALFAMPRIDINE
     Indication: MULTIPLE SCLEROSIS
     Dosage: 10 MG, Q 12 HRS
     Route: 048
  6. MELATONIN [Concomitant]
     Active Substance: MELATONIN
     Indication: PRODUCT USED FOR UNKNOWN INDICATION
     Dosage: 1 CAPSULE, PRN ORALLY AT BEDTIME
     Route: 048
  7. VITAMIN D3 [Concomitant]
     Active Substance: CHOLECALCIFEROL
     Indication: PRODUCT USED FOR UNKNOWN INDICATION
     Dosage: 2000 IU, ONCE
     Route: 048

REACTIONS (14)
  - Exostosis [Unknown]
  - Multiple sclerosis relapse [Recovering/Resolving]
  - Intervertebral disc disorder [Unknown]
  - Diplopia [Recovered/Resolved]
  - Sinusitis [Unknown]
  - Therapy cessation [Unknown]
  - Constipation [Unknown]
  - Blood glucose increased [Unknown]
  - Abdominal pain upper [Unknown]
  - Arthropathy [Unknown]
  - Insomnia [Recovered/Resolved]
  - Central nervous system lesion [Unknown]
  - Platelet count decreased [Unknown]
  - Eosinophil count increased [Unknown]

NARRATIVE: CASE EVENT DATE: 20170111
